FAERS Safety Report 18101329 (Version 10)
Quarter: 2024Q1

REPORT INFORMATION
  Report Type: Report from Study
  Country: US (occurrence: US)
  Receive Date: 20200801
  Receipt Date: 20240302
  Transmission Date: 20240409
  Serious: Yes (Hospitalization, Other)
  Sender: FDA-Public Use
  Company Number: US-SHIRE-US202024483

PATIENT
  Sex: Female
  Weight: 52.15 kg

DRUGS (43)
  1. HUMAN IMMUNOGLOBULIN G [Suspect]
     Active Substance: HUMAN IMMUNOGLOBULIN G
     Indication: Immunodeficiency common variable
     Dosage: UNK UNK, Q4WEEKS
     Route: 042
     Dates: start: 20190807
  2. HUMAN IMMUNOGLOBULIN G [Suspect]
     Active Substance: HUMAN IMMUNOGLOBULIN G
     Dosage: UNK UNK, Q4WEEKS
     Route: 042
     Dates: start: 20190808
  3. HUMAN IMMUNOGLOBULIN G [Suspect]
     Active Substance: HUMAN IMMUNOGLOBULIN G
     Dosage: 20 GRAM, Q4WEEKS
     Route: 042
     Dates: start: 201908, end: 202006
  4. HUMAN IMMUNOGLOBULIN G [Suspect]
     Active Substance: HUMAN IMMUNOGLOBULIN G
     Dosage: 25 GRAM, Q4WEEKS
     Route: 042
  5. CHLORDIAZEPOXIDE AND AMITRIPTYLINE HYDROCHLOR [Concomitant]
     Dosage: UNK
     Route: 065
  6. ACETAMINOPHEN [Concomitant]
     Active Substance: ACETAMINOPHEN
     Dosage: UNK
     Route: 065
  7. DIPHENHYDRAMINE [Concomitant]
     Active Substance: DIPHENHYDRAMINE
     Dosage: UNK
     Route: 065
  8. SODIUM CHLORIDE [Concomitant]
     Active Substance: SODIUM CHLORIDE
     Dosage: UNK
     Route: 065
  9. ONDANSETRON [Concomitant]
     Active Substance: ONDANSETRON
     Dosage: UNK
     Route: 065
  10. EPINEPHRINE [Concomitant]
     Active Substance: EPINEPHRINE
     Dosage: UNK
     Route: 065
  11. FLUOXETINE [Concomitant]
     Active Substance: FLUOXETINE HYDROCHLORIDE
     Dosage: UNK
     Route: 065
  12. PANTOPRAZOLE [Concomitant]
     Active Substance: PANTOPRAZOLE
     Indication: Gastrooesophageal reflux disease
     Dosage: 40 MILLIGRAM, QD
     Route: 065
  13. GABAPENTIN [Concomitant]
     Active Substance: GABAPENTIN
     Indication: Neuropathy peripheral
     Dosage: 400 MILLIGRAM, QD
     Route: 065
  14. IRON [Concomitant]
     Active Substance: IRON
     Dosage: UNK
     Route: 065
  15. BIOTIN [Concomitant]
     Active Substance: BIOTIN
     Dosage: 10000 MILLIGRAM
     Route: 065
  16. VISTARIL [Concomitant]
     Active Substance: HYDROXYZINE PAMOATE
     Dosage: UNK
     Route: 065
  17. WELLBUTRIN [Concomitant]
     Active Substance: BUPROPION HYDROCHLORIDE
     Dosage: UNK
     Route: 065
  18. LO LOESTRIN FE [Concomitant]
     Active Substance: ETHINYL ESTRADIOL\NORETHINDRONE ACETATE
     Dosage: UNK
     Route: 065
  19. TRAZODONE [Concomitant]
     Active Substance: TRAZODONE HYDROCHLORIDE
     Dosage: 100 MILLIGRAM
     Route: 065
  20. ROBAXIN [Concomitant]
     Active Substance: METHOCARBAMOL
     Dosage: UNK
     Route: 065
  21. SODIUM CHLORIDE [Concomitant]
     Active Substance: SODIUM CHLORIDE
     Dosage: UNK
     Route: 065
  22. DICYCLOMINE [Concomitant]
     Active Substance: DICYCLOMINE HYDROCHLORIDE
     Dosage: UNK
     Route: 065
  23. BUPROPION [Concomitant]
     Active Substance: BUPROPION
     Indication: Affective disorder
     Dosage: 30 MILLIGRAM, QD
     Route: 065
  24. TOPIRAMATE [Concomitant]
     Active Substance: TOPIRAMATE
     Dosage: 100 MILLIGRAM
     Route: 065
  25. PRAVASTATIN SODIUM [Concomitant]
     Active Substance: PRAVASTATIN SODIUM
     Dosage: 20 MILLIGRAM
     Route: 065
  26. LIDOCAINE [Concomitant]
     Active Substance: LIDOCAINE
     Dosage: UNK
     Route: 065
  27. ZOFRAN [Concomitant]
     Active Substance: ONDANSETRON HYDROCHLORIDE
     Dosage: UNK
     Route: 065
  28. FLUTICASONE PROPIONATE [Concomitant]
     Active Substance: FLUTICASONE PROPIONATE
     Dosage: UNK
     Route: 065
  29. TIZANIDINE [Concomitant]
     Active Substance: TIZANIDINE
     Dosage: UNK
     Route: 065
  30. PROTONIX [Concomitant]
     Active Substance: PANTOPRAZOLE SODIUM
     Dosage: UNK
     Route: 065
  31. LACTULOSE [Concomitant]
     Active Substance: LACTULOSE
     Dosage: UNK
     Route: 065
  32. PRAVASTATIN [Concomitant]
     Active Substance: PRAVASTATIN
     Dosage: UNK
     Route: 065
  33. PERCOCET [Concomitant]
     Active Substance: ACETAMINOPHEN\OXYCODONE HYDROCHLORIDE
     Dosage: UNK
     Route: 065
  34. VITAMIN C [Concomitant]
     Active Substance: ASCORBIC ACID
     Dosage: UNK
     Route: 065
  35. TRAZODONE HCL [Concomitant]
     Active Substance: TRAZODONE HYDROCHLORIDE
     Dosage: UNK
     Route: 065
  36. METHOCARBAMOL [Concomitant]
     Active Substance: METHOCARBAMOL
     Dosage: UNK
     Route: 065
  37. TRULANCE [Concomitant]
     Active Substance: PLECANATIDE
     Dosage: UNK
     Route: 065
  38. TOPAMAX [Concomitant]
     Active Substance: TOPIRAMATE
     Dosage: UNK
     Route: 065
  39. VITAMIN D3 [Concomitant]
     Active Substance: CHOLECALCIFEROL
     Dosage: UNK
     Route: 065
  40. FLUOXETINE HYDROCHLORIDE [Concomitant]
     Active Substance: FLUOXETINE HYDROCHLORIDE
     Dosage: UNK
     Route: 065
  41. DIPHENHYDRAMINE HYDROCHLORIDE [Concomitant]
     Active Substance: DIPHENHYDRAMINE HYDROCHLORIDE
     Dosage: UNK
     Route: 065
  42. TIZANIDINE HYDROCHLORIDE [Concomitant]
     Active Substance: TIZANIDINE HYDROCHLORIDE
     Dosage: UNK
     Route: 065
  43. DAILY VITE PLUS IRON [Concomitant]
     Dosage: UNK
     Route: 065

REACTIONS (13)
  - Pulmonary embolism [Recovered/Resolved]
  - Staphylococcal infection [Unknown]
  - Chronic obstructive pulmonary disease [Unknown]
  - SARS-CoV-2 test positive [Unknown]
  - COVID-19 [Unknown]
  - Mental disorder [Unknown]
  - Injury [Unknown]
  - Post-traumatic stress disorder [Unknown]
  - Malaise [Unknown]
  - Tremor [Unknown]
  - Vomiting [Unknown]
  - Headache [Unknown]
  - Product dose omission issue [Unknown]
